FAERS Safety Report 19933287 (Version 1)
Quarter: 2021Q4

REPORT INFORMATION
  Report Type: Spontaneous
  Country: US (occurrence: US)
  Receive Date: 20211008
  Receipt Date: 20211008
  Transmission Date: 20220303
  Serious: No
  Sender: FDA-Public Use
  Company Number: US-009507513-2109USA006962

PATIENT
  Age: 58 Year
  Sex: Male

DRUGS (2)
  1. CUBICIN [Suspect]
     Active Substance: DAPTOMYCIN
     Indication: Enterococcal infection
     Dosage: 8 MG/KG, EVERY 24 H
  2. CUBICIN [Suspect]
     Active Substance: DAPTOMYCIN
     Indication: Bacteraemia

REACTIONS (1)
  - Incorrect dose administered [Unknown]
